FAERS Safety Report 18423970 (Version 1)
Quarter: 2020Q4

REPORT INFORMATION
  Report Type: Spontaneous
  Country: US (occurrence: US)
  Receive Date: 20201025
  Receipt Date: 20201025
  Transmission Date: 20210114
  Serious: No
  Sender: FDA-Public Use
  Company Number: US-SA-2020SA298931

PATIENT

DRUGS (11)
  1. ELIDEL [Concomitant]
     Active Substance: PIMECROLIMUS
  2. MULTIVITAMIN [ASCORBIC ACID;BIOTIN;CALCIUM PANTOTHENATE;CYANOCOBALAMIN [Concomitant]
     Active Substance: VITAMINS
  3. PENICILLIN [PENICILLIN NOS] [Concomitant]
     Active Substance: PENICILLIN
  4. SYMBICORT [Concomitant]
     Active Substance: BUDESONIDE\FORMOTEROL FUMARATE DIHYDRATE
  5. DUPIXENT [Suspect]
     Active Substance: DUPILUMAB
     Indication: DERMATITIS ALLERGIC
     Dosage: 300 MG, QOW
     Route: 058
     Dates: start: 20201009
  6. VENTOLIN HFA [Concomitant]
     Active Substance: ALBUTEROL SULFATE
  7. FAMOTIDINE. [Concomitant]
     Active Substance: FAMOTIDINE
  8. TRIAMCINOLONE ACETONIDE. [Concomitant]
     Active Substance: TRIAMCINOLONE ACETONIDE
  9. IBUPROFEN. [Concomitant]
     Active Substance: IBUPROFEN
  10. XYZAL [Concomitant]
     Active Substance: LEVOCETIRIZINE DIHYDROCHLORIDE
  11. EPINEPHRINE. [Concomitant]
     Active Substance: EPINEPHRINE

REACTIONS (4)
  - Ocular hyperaemia [Unknown]
  - Product use in unapproved indication [Unknown]
  - Pruritus [Unknown]
  - Dry skin [Unknown]

NARRATIVE: CASE EVENT DATE: 202010
